FAERS Safety Report 9756642 (Version 1)
Quarter: 2013Q4

REPORT INFORMATION
  Report Type: Spontaneous
  Country: DK (occurrence: FR)
  Receive Date: 20131213
  Receipt Date: 20131213
  Transmission Date: 20140711
  Serious: Yes (Other)
  Sender: FDA-Public Use
  Company Number: FR-FRI-1000052211

PATIENT
  Sex: Female

DRUGS (2)
  1. ESCITALOPRAM [Suspect]
  2. PROPRANOLOL [Suspect]

REACTIONS (4)
  - Haemorrhage [Unknown]
  - Insomnia [Unknown]
  - Dementia [Unknown]
  - Decreased appetite [Unknown]
